FAERS Safety Report 4968843-3 (Version None)
Quarter: 2006Q2

REPORT INFORMATION
  Report Type: 
  Country: None (occurrence: None)
  Receive Date: 20060406
  Receipt Date: 20060322
  Transmission Date: 20061013
  Serious: Yes (Other)
  Sender: FDA-Public Use
  Company Number: 2006040876

PATIENT
  Sex: Male

DRUGS (2)
  1. ZMAX [Suspect]
     Indication: ILL-DEFINED DISORDER
  2. DRUG, UNSPECIFIED (DRUG, UNSPECIFIED) [Suspect]
     Indication: PRURITUS

REACTIONS (3)
  - HYPERSENSITIVITY [None]
  - NAUSEA [None]
  - REACTION TO DRUG EXCIPIENTS [None]
